FAERS Safety Report 18654307 (Version 2)
Quarter: 2021Q1

REPORT INFORMATION
  Report Type: Spontaneous
  Country: US (occurrence: US)
  Receive Date: 20201223
  Receipt Date: 20210203
  Transmission Date: 20210419
  Serious: Yes (Other)
  Sender: FDA-Public Use
  Company Number: US-ELI_LILLY_AND_COMPANY-US202012010612

PATIENT
  Age: 59 Year
  Sex: Male
  Weight: 99.8 kg

DRUGS (1)
  1. BAMLANIVIMAB. [Suspect]
     Active Substance: BAMLANIVIMAB
     Indication: COVID-19
     Dosage: 700 MG, SINGLE
     Route: 041
     Dates: start: 20201209, end: 20201209

REACTIONS (11)
  - Headache [Recovered/Resolved]
  - Pyrexia [Recovered/Resolved]
  - Dehydration [Recovered/Resolved]
  - Diarrhoea [Recovered/Resolved]
  - Dyspnoea exertional [Recovered/Resolved]
  - Insomnia [Unknown]
  - Dyspnoea [Unknown]
  - Fatigue [Recovered/Resolved]
  - COVID-19 [Unknown]
  - Nausea [Recovered/Resolved]
  - Dry mouth [Recovered/Resolved]

NARRATIVE: CASE EVENT DATE: 20201209
